FAERS Safety Report 9729057 (Version 2)
Quarter: 2013Q4

REPORT INFORMATION
  Report Type: Spontaneous
  Country: DK (occurrence: DK)
  Receive Date: 20131204
  Receipt Date: 20131206
  Transmission Date: 20140711
  Serious: Yes (Hospitalization)
  Sender: FDA-Public Use
  Company Number: PHHY2013DK137525

PATIENT
  Age: 17 Year
  Sex: Female

DRUGS (1)
  1. NOVYNETTE [Suspect]
     Indication: CONTRACEPTION
     Route: 048
     Dates: start: 201101

REACTIONS (6)
  - Vena cava filter insertion [Recovered/Resolved]
  - Back pain [Unknown]
  - Thrombosis [Unknown]
  - Limb discomfort [Unknown]
  - Local swelling [Unknown]
  - Skin discolouration [Unknown]
